FAERS Safety Report 9720038 (Version 1)
Quarter: 2013Q4

REPORT INFORMATION
  Report Type: Spontaneous
  Country: IT (occurrence: IT)
  Receive Date: 20131128
  Receipt Date: 20131128
  Transmission Date: 20140711
  Serious: Yes (Life-Threatening)
  Sender: FDA-Public Use
  Company Number: IT-BRISTOL-MYERS SQUIBB COMPANY-19859032

PATIENT
  Age: 43 Year
  Sex: Male
  Weight: 90 kg

DRUGS (5)
  1. ERBITUX SOLN FOR INF [Suspect]
     Indication: RECTAL CANCER STAGE IV
     Dosage: 802 MG TOTAL.
     Route: 042
     Dates: start: 20130410, end: 20130410
  2. CAMPTO [Suspect]
     Indication: RECTAL NEOPLASM
     Dosage: 20 MG/ML CYCLICALLY IV.
     Route: 042
     Dates: start: 20130326, end: 20130409
  3. FLUOROURACIL [Suspect]
     Indication: RECTAL NEOPLASM
     Dosage: FLUROURACIL TRAVIDA: 5 G/10 ML, CYCLICALLY IV.
     Route: 042
     Dates: start: 20130326, end: 20130409
  4. ZOFRAN [Concomitant]
     Indication: PROPHYLAXIS OF NAUSEA AND VOMITING
     Dosage: 1 DF = 8 MG/4 ML.
     Route: 042
     Dates: start: 20130326, end: 20130409
  5. DEXAMETHASONE [Concomitant]
     Indication: PROPHYLAXIS OF NAUSEA AND VOMITING
     Dosage: DEXAMETHASONE PHOSHPHATE : 8 MG/2 ML.
     Route: 042
     Dates: start: 20130326, end: 20130409

REACTIONS (2)
  - Abdominal sepsis [Recovered/Resolved with Sequelae]
  - Febrile neutropenia [Recovered/Resolved with Sequelae]
